FAERS Safety Report 11772246 (Version 1)
Quarter: 2015Q4

REPORT INFORMATION
  Report Type: Spontaneous
  Country: US (occurrence: US)
  Receive Date: 20151124
  Receipt Date: 20151124
  Transmission Date: 20160304
  Serious: No
  Sender: FDA-Public Use
  Company Number: US-TEVA-567920USA

PATIENT
  Sex: Male

DRUGS (1)
  1. AZITHROMYCIN [Suspect]
     Active Substance: AZITHROMYCIN ANHYDROUS
     Indication: COUGH
     Dosage: PRODUCT STRENGH WAS NOT AVAILABLE
     Dates: start: 201505

REACTIONS (2)
  - Product taste abnormal [Unknown]
  - Vomiting [Unknown]
